FAERS Safety Report 9778174 (Version 2)
Quarter: 2014Q1

REPORT INFORMATION
  Report Type: Spontaneous
  Country: US (occurrence: US)
  Receive Date: 20131223
  Receipt Date: 20140108
  Transmission Date: 20141002
  Serious: Yes (Other)
  Sender: FDA-Public Use
  Company Number: US-AMGEN-USASP2013088663

PATIENT
  Age: 83 Year
  Sex: Female
  Weight: 40.82 kg

DRUGS (1)
  1. PROLIA [Suspect]
     Indication: OSTEOPOROSIS POSTMENOPAUSAL
     Dosage: UNK
     Route: 065
     Dates: start: 20131107

REACTIONS (12)
  - Sciatic nerve injury [Unknown]
  - Back pain [Not Recovered/Not Resolved]
  - Anorectal disorder [Unknown]
  - Bladder disorder [Unknown]
  - Burning sensation [Unknown]
  - Dysuria [Unknown]
  - Arthritis [Unknown]
  - Pain in extremity [Not Recovered/Not Resolved]
  - Immune system disorder [Unknown]
  - Hypertension [Unknown]
  - Insomnia [Unknown]
  - Cystitis [Not Recovered/Not Resolved]
